FAERS Safety Report 4697426-8 (Version None)
Quarter: 2005Q2

REPORT INFORMATION
  Report Type: 
  Country: None (occurrence: None)
  Receive Date: 20050621
  Receipt Date: 20050603
  Transmission Date: 20051028
  Serious: Yes (Death, Other)
  Sender: FDA-Public Use
  Company Number: US_0506118446

PATIENT
  Age: 6 Year
  Sex: Male

DRUGS (1)
  1. ZYPREXA [Suspect]
     Indication: AUTISM
     Dates: start: 20000101

REACTIONS (4)
  - DIABETES MELLITUS [None]
  - DIABETIC COMA [None]
  - KETOACIDOSIS [None]
  - PANCREATITIS [None]
